FAERS Safety Report 6571040-1 (Version None)
Quarter: 2010Q1

REPORT INFORMATION
  Report Type: 
  Country: None (occurrence: None)
  Receive Date: 20100204
  Receipt Date: 20100126
  Transmission Date: 20100710
  Serious: Yes (Other)
  Sender: FDA-Public Use
  Company Number: US-AMGEN-QUU388451

PATIENT
  Sex: Female

DRUGS (3)
  1. NPLATE [Suspect]
     Indication: IDIOPATHIC THROMBOCYTOPENIC PURPURA
     Dates: start: 20090129
  2. CORTICOSTEROID NOS [Concomitant]
     Dates: start: 20070201
  3. IMMU-G [Concomitant]
     Dates: start: 20070201

REACTIONS (1)
  - HYPOTHYROIDISM [None]
